FAERS Safety Report 7355486-X (Version None)
Quarter: 2011Q1

REPORT INFORMATION
  Report Type: 
  Country: None (occurrence: None)
  Receive Date: 20110316
  Receipt Date: 20101005
  Transmission Date: 20110831
  Serious: Yes (Hospitalization)
  Sender: FDA-Public Use
  Company Number: A0886527A

PATIENT
  Sex: Male

DRUGS (7)
  1. SOTALOL HYDROCHLORIDE [Concomitant]
  2. COUMADIN [Concomitant]
  3. LIPITOR [Concomitant]
  4. AVANDIA [Suspect]
     Route: 048
     Dates: end: 20070101
  5. GLUCOPHAGE [Concomitant]
  6. TOPROL-XL [Concomitant]
  7. HYDROCHLOROTHIAZIDE [Concomitant]

REACTIONS (8)
  - CARDIAC FAILURE CONGESTIVE [None]
  - CAROTID ARTERY DISEASE [None]
  - TRANSIENT ISCHAEMIC ATTACK [None]
  - CARDIAC DISORDER [None]
  - CORONARY ARTERY DISEASE [None]
  - ATRIAL FIBRILLATION [None]
  - CARDIOVASCULAR DISORDER [None]
  - CORONARY ARTERY BYPASS [None]
